FAERS Safety Report 4708125-8 (Version None)
Quarter: 2005Q3

REPORT INFORMATION
  Report Type: 
  Country: None (occurrence: None)
  Receive Date: 20050707
  Receipt Date: 20050630
  Transmission Date: 20060218
  Serious: Yes (Hospitalization)
  Sender: FDA-Public Use
  Company Number: 2005PK01137

PATIENT
  Age: 51 Year
  Sex: Male

DRUGS (7)
  1. NEXIUM [Suspect]
     Route: 048
     Dates: end: 20050614
  2. SEROPRAM [Suspect]
     Indication: DEPRESSION
     Route: 048
  3. CELLCEPT [Suspect]
     Indication: LIVER TRANSPLANT
     Route: 048
     Dates: start: 20040801
  4. PROGRAF [Suspect]
     Indication: LIVER TRANSPLANT
     Route: 048
     Dates: start: 20040801
  5. BELOC [Concomitant]
     Indication: SECONDARY HYPERTENSION
     Route: 048
  6. PREDNISONE TAB [Concomitant]
     Indication: LIVER TRANSPLANT
     Route: 048
     Dates: start: 20040801
  7. KONAKION [Concomitant]
     Route: 048

REACTIONS (1)
  - CHOLESTASIS [None]
